FAERS Safety Report 10154498 (Version 1)
Quarter: 2014Q2

REPORT INFORMATION
  Report Type: Spontaneous
  Country: US (occurrence: None)
  Receive Date: 20140505
  Receipt Date: 20140505
  Transmission Date: 20141212
  Serious: Yes (Death)
  Sender: FDA-Public Use
  Company Number: None

PATIENT
  Age: 91 Year
  Sex: Male

DRUGS (5)
  1. ZYTIGA [Suspect]
     Route: 048
     Dates: start: 20140108, end: 20140430
  2. LUPRON DEPOT [Concomitant]
  3. PREDNISONE [Concomitant]
  4. ALEVE [Concomitant]
  5. BERIMOL [Concomitant]

REACTIONS (4)
  - Peripheral swelling [None]
  - Peripheral swelling [None]
  - Blood pressure decreased [None]
  - Incorrect dose administered [None]
